FAERS Safety Report 25021351 (Version 1)
Quarter: 2025Q1

REPORT INFORMATION
  Report Type: Report from Study
  Country: IN (occurrence: IN)
  Receive Date: 20250228
  Receipt Date: 20250228
  Transmission Date: 20250409
  Serious: Yes (Other)
  Sender: NOVARTIS
  Company Number: IN-002147023-NVSC2024IN117466

PATIENT
  Sex: Female

DRUGS (1)
  1. RIBOCICLIB [Suspect]
     Active Substance: RIBOCICLIB
     Indication: Breast cancer metastatic
     Dosage: 600 MG, QD
     Route: 048
     Dates: start: 20240229

REACTIONS (4)
  - Breast cancer metastatic [Recovering/Resolving]
  - Nipple disorder [Unknown]
  - Eastern Cooperative Oncology Group performance status abnormal [Unknown]
  - Skin hypopigmentation [Recovering/Resolving]
